FAERS Safety Report 23956733 (Version 1)
Quarter: 2024Q2

REPORT INFORMATION
  Report Type: Spontaneous
  Country: US (occurrence: US)
  Receive Date: 20240610
  Receipt Date: 20240610
  Transmission Date: 20240717
  Serious: No
  Sender: FDA-Public Use
  Company Number: US-ELI_LILLY_AND_COMPANY-US202406000502

PATIENT
  Age: 57 Year
  Sex: Female

DRUGS (2)
  1. TRULICITY [Suspect]
     Active Substance: DULAGLUTIDE
     Indication: Type 2 diabetes mellitus
     Dosage: 1.5 MG, UNKNOWN
     Route: 058
     Dates: start: 202309
  2. TRULICITY [Suspect]
     Active Substance: DULAGLUTIDE
     Dosage: 4.5 MG, UNKNOWN
     Route: 058

REACTIONS (10)
  - Illness [Unknown]
  - Mobility decreased [Unknown]
  - Feeding disorder [Unknown]
  - Renal disorder [Unknown]
  - Pancreatic disorder [Unknown]
  - Diplopia [Unknown]
  - Balance disorder [Unknown]
  - Facioscapulohumeral muscular dystrophy [Unknown]
  - Cardiac disorder [Unknown]
  - Lung disorder [Unknown]
